FAERS Safety Report 23381288 (Version 1)
Quarter: 2024Q1

REPORT INFORMATION
  Report Type: Spontaneous
  Country: CA (occurrence: CA)
  Receive Date: 20240109
  Receipt Date: 20240109
  Transmission Date: 20240410
  Serious: Yes (Hospitalization, Other)
  Sender: FDA-Public Use
  Company Number: CA-NOVOPROD-1158069

PATIENT
  Sex: Male
  Weight: 113 kg

DRUGS (5)
  1. OZEMPIC [Suspect]
     Active Substance: SEMAGLUTIDE
     Indication: Product used for unknown indication
     Dosage: UNK
  2. INFLECTRA [Suspect]
     Active Substance: INFLIXIMAB-DYYB
     Indication: Crohn^s disease
     Dosage: 5 MG/KG, 0,2, 6 WEEKS
     Route: 042
     Dates: start: 20200722
  3. AZATHIOPRINE [Concomitant]
     Active Substance: AZATHIOPRINE
     Indication: Product used for unknown indication
     Dosage: UNK
     Dates: start: 202108
  4. CORTISONE [Concomitant]
     Active Substance: CORTISONE
     Indication: Product used for unknown indication
     Dosage: UNK
     Dates: start: 20200614
  5. METFORMIN [Concomitant]
     Active Substance: METFORMIN HYDROCHLORIDE
     Indication: Diabetes mellitus
     Dosage: UNK

REACTIONS (18)
  - Nephrolithiasis [Unknown]
  - Intestinal obstruction [Unknown]
  - Uveitis [Recovered/Resolved]
  - Toothache [Not Recovered/Not Resolved]
  - Glaucoma [Not Recovered/Not Resolved]
  - Peripheral coldness [Unknown]
  - Hyperaesthesia teeth [Not Recovered/Not Resolved]
  - Dyspnoea [Recovering/Resolving]
  - Arthralgia [Recovered/Resolved]
  - Fistula [Unknown]
  - Anal fissure [Unknown]
  - Anal fistula [Unknown]
  - SARS-CoV-2 antibody test positive [Recovered/Resolved]
  - Increased appetite [Unknown]
  - Blood pressure increased [Unknown]
  - Weight decreased [Unknown]
  - Abdominal distension [Unknown]
  - Heart rate decreased [Unknown]

NARRATIVE: CASE EVENT DATE: 20200820
